FAERS Safety Report 14077841 (Version 1)
Quarter: 2017Q4

REPORT INFORMATION
  Report Type: Spontaneous
  Country: RU (occurrence: RU)
  Receive Date: 20171012
  Receipt Date: 20171012
  Transmission Date: 20180321
  Serious: Yes (Hospitalization)
  Sender: FDA-Public Use
  Company Number: RU-ASTRAZENECA-2017SF03619

PATIENT
  Age: 66 Year
  Sex: Male
  Weight: 78 kg

DRUGS (7)
  1. SOTAHEXAL [Concomitant]
     Active Substance: SOTALOL
  2. PERINEVA [Concomitant]
     Active Substance: PERINDOPRIL ERBUMINE
  3. BRILINTA [Suspect]
     Active Substance: TICAGRELOR
     Indication: MYOCARDIAL INFARCTION
     Route: 048
  4. ATORVASTATIN [Concomitant]
     Active Substance: ATORVASTATIN
  5. DIUVER [Concomitant]
     Active Substance: TORSEMIDE
  6. CONCOR COR [Concomitant]
     Active Substance: BISOPROLOL FUMARATE
  7. INSPRA [Concomitant]
     Active Substance: EPLERENONE

REACTIONS (1)
  - Thrombosis [Recovered/Resolved]
